FAERS Safety Report 21363183 (Version 2)
Quarter: 2022Q3

REPORT INFORMATION
  Report Type: Spontaneous
  Country: FR (occurrence: FR)
  Receive Date: 20220922
  Receipt Date: 20220926
  Transmission Date: 20221027
  Serious: Yes (Other)
  Sender: FDA-Public Use
  Company Number: FR-BRISTOL-MYERS SQUIBB COMPANY-2022-107621

PATIENT
  Age: 74 Year
  Sex: Male
  Weight: 81 kg

DRUGS (4)
  1. ONUREG [Suspect]
     Active Substance: AZACITIDINE
     Indication: Acute myeloid leukaemia
     Route: 065
     Dates: start: 20220131
  2. ONUREG [Suspect]
     Active Substance: AZACITIDINE
     Route: 065
     Dates: start: 20220404
  3. ONUREG [Suspect]
     Active Substance: AZACITIDINE
     Route: 065
     Dates: start: 20220503
  4. ONUREG [Suspect]
     Active Substance: AZACITIDINE
     Route: 065
     Dates: start: 20220629

REACTIONS (1)
  - Cataract [Unknown]
